FAERS Safety Report 5342572-9 (Version None)
Quarter: 2007Q2

REPORT INFORMATION
  Report Type: 
  Country: None (occurrence: None)
  Receive Date: 20070601
  Receipt Date: 20061206
  Transmission Date: 20071010
  Serious: No
  Sender: FDA-Public Use
  Company Number: A0630612A

PATIENT
  Age: 6 Year
  Sex: Female

DRUGS (2)
  1. AMOXICILLIN + CLAVULANATE POTASSIUM [Suspect]
     Indication: DRUG USE FOR UNKNOWN INDICATION
     Route: 048
  2. AZITHROMYCIN [Concomitant]

REACTIONS (2)
  - MEDICATION ERROR [None]
  - MOUTH PLAQUE [None]
